FAERS Safety Report 25935371 (Version 1)
Quarter: 2025Q4

REPORT INFORMATION
  Report Type: Spontaneous
  Country: US (occurrence: None)
  Receive Date: 20251017
  Receipt Date: 20251017
  Transmission Date: 20260117
  Serious: Yes (Hospitalization)
  Sender: FDA-CTU
  Company Number: None

PATIENT
  Sex: Female

DRUGS (2)
  1. TACROLIMUS [Suspect]
     Active Substance: TACROLIMUS
     Indication: Renal transplant
     Dosage: OTHER FREQUENCY : TAKE 2 CAPSULES BY MOUTH EVERY MORNING AND TAKE 3 CAPSULES EVERY EVENING ;?
     Route: 048
     Dates: start: 20171018
  2. FERROUS SULF TAB 325MG [Concomitant]

REACTIONS (1)
  - Hospitalisation [None]
